FAERS Safety Report 6687571-X (Version None)
Quarter: 2010Q2

REPORT INFORMATION
  Report Type: 
  Country: None (occurrence: None)
  Receive Date: 20100416
  Receipt Date: 20100416
  Transmission Date: 20101027
  Serious: Yes (Death)
  Sender: FDA-Public Use
  Company Number: None

PATIENT
  Sex: Male

DRUGS (1)
  1. TEMODAR [Suspect]
     Dosage: TEMODAR 100MG 2 TABS QD FOR 5 DAYS ORAL
     Route: 048

REACTIONS (1)
  - DEATH [None]
